FAERS Safety Report 7184888-X (Version None)
Quarter: 2010Q4

REPORT INFORMATION
  Report Type: 
  Country: None (occurrence: None)
  Receive Date: 20101222
  Receipt Date: 20101215
  Transmission Date: 20110411
  Serious: Yes (Hospitalization)
  Sender: FDA-Public Use
  Company Number: US-US-EMD SERONO, INC.-7032241

PATIENT
  Sex: Male

DRUGS (3)
  1. REBIF [Suspect]
     Indication: MULTIPLE SCLEROSIS
     Route: 058
     Dates: start: 20090101, end: 20100101
  2. INSULIN [Concomitant]
     Indication: TYPE 2 DIABETES MELLITUS
  3. MUSCLE RELAXER [Concomitant]

REACTIONS (2)
  - HEADACHE [None]
  - HEPATIC INFECTION [None]
